FAERS Safety Report 5600594-4 (Version None)
Quarter: 2008Q1

REPORT INFORMATION
  Report Type: 
  Country: None (occurrence: None)
  Receive Date: 20080111
  Receipt Date: 20070625
  Transmission Date: 20080703
  Serious: Yes (Other)
  Sender: FDA-Public Use
  Company Number: HQWYE288524FEB04

PATIENT
  Age: 62 Year
  Sex: Female
  Weight: 76.27 kg

DRUGS (2)
  1. PREMPRO [Suspect]
     Indication: HORMONE REPLACEMENT THERAPY
     Dosage: 0.625MG/UNSPECIFIED, ORAL
     Route: 048
     Dates: start: 19950515, end: 20020507
  2. PREMARIN [Suspect]
     Indication: HORMONE REPLACEMENT THERAPY
     Dosage: ORAL
     Route: 048
     Dates: start: 19920302, end: 19960505

REACTIONS (1)
  - OVARIAN CANCER METASTATIC [None]
